FAERS Safety Report 10241774 (Version 1)
Quarter: 2014Q2

REPORT INFORMATION
  Report Type: Spontaneous
  Country: US (occurrence: None)
  Receive Date: 20140613
  Receipt Date: 20140613
  Transmission Date: 20141212
  Serious: Yes (Hospitalization, Other)
  Sender: FDA-Public Use
  Company Number: ADR-2014-00998

PATIENT
  Sex: Female

DRUGS (4)
  1. BACLOFEN INTRATHECAL [Suspect]
     Indication: PAIN
  2. DILAUDID [Suspect]
     Dates: start: 20140430
  3. CLONIDINE [Suspect]
  4. BUPIVACAINE [Suspect]

REACTIONS (6)
  - Pneumonia [None]
  - Impaired gastric emptying [None]
  - Thrombosis in device [None]
  - Device related infection [None]
  - Chronic obstructive pulmonary disease [None]
  - Hypophagia [None]
